FAERS Safety Report 9270831 (Version 1)
Quarter: 2013Q2

REPORT INFORMATION
  Report Type: Spontaneous
  Country: US (occurrence: US)
  Receive Date: 20130506
  Receipt Date: 20130506
  Transmission Date: 20140414
  Serious: No
  Sender: FDA-Public Use
  Company Number: US-009507513-1305USA000610

PATIENT
  Sex: Female

DRUGS (2)
  1. JANUVIA [Suspect]
     Indication: TYPE 2 DIABETES MELLITUS
     Dosage: 200 MG, DAILY
     Route: 048
     Dates: start: 201301, end: 2013
  2. JANUVIA [Suspect]
     Dosage: 50 MG, DAILY
     Route: 048
     Dates: start: 2013, end: 2013

REACTIONS (3)
  - Lipase increased [Unknown]
  - Liver function test abnormal [Unknown]
  - Incorrect dose administered [Unknown]
